FAERS Safety Report 4865862-2 (Version None)
Quarter: 2005Q4

REPORT INFORMATION
  Report Type: 
  Country: None (occurrence: None)
  Receive Date: 20051220
  Receipt Date: 20051205
  Transmission Date: 20060501
  Serious: Yes (Hospitalization)
  Sender: FDA-Public Use
  Company Number: 2005150123

PATIENT
  Age: 56 Year
  Sex: Female
  Weight: 50 kg

DRUGS (5)
  1. SULFASALAZINE [Suspect]
     Indication: COLITIS ULCERATIVE
     Dosage: 4000 MG (4 IN 1 D), ORAL
     Route: 048
     Dates: start: 20050929, end: 20051022
  2. LOXONIN (LOXOPROFEN SODIUM) [Concomitant]
  3. KAKKON-TO (HERBAL EXTRACTS NOS) [Concomitant]
  4. CLARITHROMYCIN [Concomitant]
  5. ENTERONON R (BIFIDOBACTERIUM BIFIDUM, LACTOBACILLUS ACIDOPHILUS, LACTO [Concomitant]

REACTIONS (4)
  - DRUG ERUPTION [None]
  - DRUG HYPERSENSITIVITY [None]
  - LIVER DISORDER [None]
  - NASOPHARYNGITIS [None]
